FAERS Safety Report 5954430-7 (Version None)
Quarter: 2008Q4

REPORT INFORMATION
  Report Type: 
  Country: None (occurrence: None)
  Receive Date: 20081112
  Receipt Date: 20081104
  Transmission Date: 20090506
  Serious: Yes (Hospitalization, Other)
  Sender: FDA-Public Use
  Company Number: 2008SP019327

PATIENT
  Age: 77 Year
  Sex: Male
  Weight: 60 kg

DRUGS (5)
  1. INTRON A [Suspect]
     Indication: HEPATITIS C
     Dosage: 3 MIU;TIW;IM
     Route: 030
     Dates: start: 20071002, end: 20080910
  2. URSO 250 [Concomitant]
  3. DIOVAN [Concomitant]
  4. CIBENOL [Concomitant]
  5. URINORM [Concomitant]

REACTIONS (3)
  - DECREASED APPETITE [None]
  - INTERSTITIAL LUNG DISEASE [None]
  - MALAISE [None]
